FAERS Safety Report 7270809-8 (Version None)
Quarter: 2011Q1

REPORT INFORMATION
  Report Type: 
  Country: None (occurrence: None)
  Receive Date: 20110202
  Receipt Date: 20110127
  Transmission Date: 20110831
  Serious: Yes (Hospitalization)
  Sender: FDA-Public Use
  Company Number: US-B.I. PHARMACEUTICALS,INC./RIDGEFIELD-2010-BP-15090BP

PATIENT
  Age: 86 Year
  Sex: Male

DRUGS (4)
  1. PRADAXA [Suspect]
     Indication: ATRIAL FIBRILLATION
     Dosage: 150 MG
     Dates: start: 20101213, end: 20110103
  2. FINASTERIDE [Concomitant]
     Dosage: 5 MG
  3. HYTRIN [Concomitant]
     Dosage: 5 MG
  4. TOPROL-XL [Concomitant]
     Dosage: 50 MG

REACTIONS (5)
  - HAEMOTHORAX [None]
  - GASTROINTESTINAL HAEMORRHAGE [None]
  - COUGH [None]
  - PLEURAL EFFUSION [None]
  - DYSPNOEA [None]
